FAERS Safety Report 7864685-X (Version None)
Quarter: 2011Q4

REPORT INFORMATION
  Report Type: 
  Country: None (occurrence: None)
  Receive Date: 20111028
  Receipt Date: 20111025
  Transmission Date: 20120403
  Serious: Yes (Hospitalization)
  Sender: FDA-Public Use
  Company Number: IN-PFIZER INC-2009258433

PATIENT
  Age: 50 Year
  Sex: Female
  Weight: 86 kg

DRUGS (9)
  1. LEVOTHYROXINE SODIUM [Concomitant]
     Dosage: UNK
     Route: 048
     Dates: start: 20070101
  2. SUNITINIB MALATE [Suspect]
     Indication: GASTROINTESTINAL STROMAL TUMOUR
     Dosage: 37.5 MG, 1X/DAY, FOR 28 DAYS
     Route: 048
     Dates: start: 20071018
  3. LASIX [Concomitant]
     Dosage: UNK
     Route: 048
     Dates: start: 20080101, end: 20090818
  4. ATEN [Concomitant]
     Dosage: UNK
     Route: 048
     Dates: start: 20070101, end: 20090818
  5. ALLOPURINOL [Concomitant]
     Dosage: UNK
     Route: 048
     Dates: start: 20080101, end: 20090818
  6. AMLODIPINE [Concomitant]
     Dosage: UNK
     Route: 048
     Dates: start: 20070101
  7. COMBIFLAM [Concomitant]
     Route: 048
     Dates: start: 20080101, end: 20090818
  8. METFORMIN [Concomitant]
     Dosage: UNK
     Route: 048
     Dates: start: 20070101, end: 20090819
  9. CHLORHEXIDINE [Concomitant]
     Route: 048
     Dates: start: 20080101, end: 20090818

REACTIONS (1)
  - HEMIPARESIS [None]
